FAERS Safety Report 15993336 (Version 1)
Quarter: 2019Q1

REPORT INFORMATION
  Report Type: Spontaneous
  Country: CA (occurrence: CA)
  Receive Date: 20190222
  Receipt Date: 20190222
  Transmission Date: 20190418
  Serious: Yes (Other)
  Sender: FDA-Public Use
  Company Number: CA-AMGEN-CANSP2019024701

PATIENT
  Age: 77 Year
  Sex: Female
  Weight: 74.83 kg

DRUGS (2)
  1. PROLIA [Suspect]
     Active Substance: DENOSUMAB
     Indication: OSTEOPOROSIS
     Dosage: 60 MG, Q6MO
     Route: 058
  2. SULFATRIM [Suspect]
     Active Substance: SULFAMETHOXAZOLE\TRIMETHOPRIM
     Indication: PRODUCT USED FOR UNKNOWN INDICATION
     Dosage: UNK
     Route: 065

REACTIONS (16)
  - Chills [Recovered/Resolved]
  - Eating disorder [Recovered/Resolved]
  - Pruritus [Recovered/Resolved]
  - Syncope [Recovered/Resolved]
  - Contusion [Recovered/Resolved]
  - Muscle spasms [Recovered/Resolved]
  - Ocular discomfort [Recovered/Resolved]
  - Rash papular [Recovered/Resolved]
  - Tremor [Recovered/Resolved]
  - Asthenia [Recovered/Resolved]
  - Pyrexia [Recovered/Resolved]
  - Urticaria [Recovered/Resolved]
  - Gastric disorder [Recovered/Resolved]
  - Biopsy site unspecified abnormal [Recovered/Resolved]
  - Dizziness [Recovered/Resolved]
  - Bladder disorder [Recovered/Resolved]
